FAERS Safety Report 21053737 (Version 1)
Quarter: 2022Q3

REPORT INFORMATION
  Report Type: Spontaneous
  Country: US (occurrence: US)
  Receive Date: 20220707
  Receipt Date: 20220707
  Transmission Date: 20221027
  Serious: Yes (Other)
  Sender: FDA-Public Use
  Company Number: US-AMGEN-USASP2022112095

PATIENT
  Age: 64 Year
  Sex: Female

DRUGS (4)
  1. BEVACIZUMAB [Suspect]
     Active Substance: BEVACIZUMAB
     Indication: Vulval cancer
     Dosage: 15 MILLIGRAM/KG, Q3WK
     Route: 065
  2. CISPLATIN [Concomitant]
     Active Substance: CISPLATIN
  3. CARBOPLATIN [Concomitant]
     Active Substance: CARBOPLATIN
  4. PACLITAXEL [Concomitant]
     Active Substance: PACLITAXEL
     Dosage: 175 MILLIGRAM/M2

REACTIONS (7)
  - Squamous cell carcinoma of the vulva [Unknown]
  - Metastases to liver [Unknown]
  - Metastases to lung [Unknown]
  - Off label use [Unknown]
  - Rash [Unknown]
  - Diarrhoea [Unknown]
  - Mucosal inflammation [Unknown]
